FAERS Safety Report 22654460 (Version 1)
Quarter: 2023Q2

REPORT INFORMATION
  Report Type: Spontaneous
  Country: US (occurrence: None)
  Receive Date: 20230628
  Receipt Date: 20230628
  Transmission Date: 20230722
  Serious: Yes (Other)
  Sender: FDA-Public Use
  Company Number: None

PATIENT
  Age: 78 Year
  Sex: Female
  Weight: 49.05 kg

DRUGS (7)
  1. RESTASIS [Suspect]
     Active Substance: CYCLOSPORINE
     Indication: Ocular hyperaemia
     Dosage: OTHER QUANTITY : 1 DROP(S);?FREQUENCY : EVERY 12 HOURS;?
     Route: 047
     Dates: start: 20230615, end: 20230628
  2. MAXITROL [Concomitant]
     Active Substance: DEXAMETHASONE\NEOMYCIN SULFATE\POLYMYXIN B SULFATE
  3. PROLIA [Concomitant]
     Active Substance: DENOSUMAB
  4. FISH OIL [Concomitant]
     Active Substance: FISH OIL
  5. CALCIUM [Concomitant]
     Active Substance: CALCIUM
  6. Areds 2 + vitamins [Concomitant]
  7. HERBALS\TURMERIC [Concomitant]
     Active Substance: HERBALS\TURMERIC

REACTIONS (3)
  - Anxiety [None]
  - Depression [None]
  - Chest discomfort [None]

NARRATIVE: CASE EVENT DATE: 20230615
